FAERS Safety Report 8190231-X (Version None)
Quarter: 2012Q1

REPORT INFORMATION
  Report Type: 
  Country: None (occurrence: None)
  Receive Date: 20120305
  Receipt Date: 20120301
  Transmission Date: 20120608
  Serious: Yes (Death)
  Sender: FDA-Public Use
  Company Number: 2012POI057300005

PATIENT
  Age: 77 Year
  Sex: Female

DRUGS (7)
  1. ALENDRONATE SODIUM [Suspect]
     Dosage: PER ORAL
     Route: 048
     Dates: end: 20100101
  2. ALPRAZOLAM [Suspect]
     Dosage: PER ORAL
     Route: 048
     Dates: end: 20100101
  3. SALICYLATE [Suspect]
     Dosage: PER ORAL
     Route: 048
     Dates: end: 20100101
  4. OXYBUTYNIN CHLORIDE [Suspect]
     Dosage: PER ORAL
     Route: 048
     Dates: end: 20100101
  5. NITROGLYCERIN [Suspect]
     Dosage: PER ORAL
     Route: 048
     Dates: end: 20100101
  6. CARVEDILOL [Suspect]
     Dosage: PER ORAL
     Route: 048
     Dates: end: 20100101
  7. CITALOPRAM [Suspect]
     Dosage: PER ORAL
     Route: 048
     Dates: end: 20100101

REACTIONS (2)
  - INTENTIONAL DRUG MISUSE [None]
  - COMPLETED SUICIDE [None]
